FAERS Safety Report 17831393 (Version 1)
Quarter: 2020Q2

REPORT INFORMATION
  Report Type: Spontaneous
  Country: US (occurrence: US)
  Receive Date: 20200527
  Receipt Date: 20200527
  Transmission Date: 20200714
  Serious: Yes (Other)
  Sender: FDA-Public Use
  Company Number: US-BIOMARINAP-US-2020-130217

PATIENT
  Age: 1 Year
  Sex: Female

DRUGS (1)
  1. ALDURAZYME [Suspect]
     Active Substance: LARONIDASE
     Indication: MUCOPOLYSACCHARIDOSIS I
     Dosage: 11.6 MILLIGRAM, QW
     Route: 041
     Dates: start: 20191206

REACTIONS (3)
  - Complication associated with device [Recovered/Resolved]
  - Product use issue [Unknown]
  - Dialysis [Recovered/Resolved]

NARRATIVE: CASE EVENT DATE: 20191206
